FAERS Safety Report 22620898 (Version 2)
Quarter: 2023Q2

REPORT INFORMATION
  Report Type: Report from Study
  Country: US (occurrence: US)
  Receive Date: 20230620
  Receipt Date: 20230629
  Transmission Date: 20230722
  Serious: Yes (Hospitalization)
  Sender: FDA-Public Use
  Company Number: US-PFIZER INC-US-GBT-019668

PATIENT
  Age: 44 Year
  Sex: Male

DRUGS (11)
  1. VOXELOTOR [Suspect]
     Active Substance: VOXELOTOR
     Indication: Sickle cell disease
     Dosage: 1500 MG, 1X/DAY
     Dates: start: 20220201
  2. VOXELOTOR [Suspect]
     Active Substance: VOXELOTOR
     Indication: Haemolysis
  3. deferasirox (Jadenu) [Concomitant]
     Indication: Sickle cell disease
     Dosage: 360 MG, 1X/DAY
     Route: 048
     Dates: start: 20220125
  4. FOLVITE [Concomitant]
     Active Substance: FOLIC ACID
     Indication: Sickle cell disease
     Dosage: 3 MG, 1X/DAY
     Route: 048
     Dates: start: 20111011
  5. DOLOPHINE [Concomitant]
     Active Substance: METHADONE HYDROCHLORIDE
     Indication: Sickle cell disease
     Dosage: 5 MG, 1X/DAY
     Route: 048
     Dates: start: 20110621
  6. DOLOPHINE [Concomitant]
     Active Substance: METHADONE HYDROCHLORIDE
     Dosage: 10 MG; FREQUENCY: Q12H
     Route: 048
     Dates: start: 20150520
  7. MORPHINE SULFATE [Concomitant]
     Active Substance: MORPHINE SULFATE
     Indication: Sickle cell disease
     Dosage: 15 MG, Q6H PRN PAIN
     Route: 048
     Dates: start: 20170727
  8. MORPHINE SULFATE [Concomitant]
     Active Substance: MORPHINE SULFATE
     Indication: Pain
  9. NEURONTIN [Concomitant]
     Active Substance: GABAPENTIN
     Indication: Sickle cell disease
     Dosage: 200 MG, 2X/DAY
     Route: 048
     Dates: start: 20160628
  10. ENDARI [Concomitant]
     Active Substance: GLUTAMINE
     Indication: Sickle cell disease
     Dosage: 15 MG, 2X/DAY
     Route: 048
     Dates: start: 20191218
  11. VITAMIN D3 [Concomitant]
     Active Substance: CHOLECALCIFEROL
     Indication: Sickle cell disease
     Dosage: 50000 IU, 1X/DAY
     Route: 048
     Dates: start: 20150625

REACTIONS (1)
  - Sickle cell anaemia with crisis [Recovered/Resolved]

NARRATIVE: CASE EVENT DATE: 20220930
